FAERS Safety Report 8778936 (Version 1)
Quarter: 2012Q4

REPORT INFORMATION
  Report Type: 
  Country: GB (occurrence: GB)
  Receive Date: 20120910
  Receipt Date: 20120910
  Transmission Date: 20130627
  Serious: Yes (Other)
  Sender: FDA-Public Use
  Company Number: GB-ELI_LILLY_AND_COMPANY-GB201209000445

PATIENT
  Age: 54 Year
  Sex: Male
  Weight: 71 kg

DRUGS (4)
  1. CYMBALTA [Suspect]
  2. MST CONTINUS [Concomitant]
  3. PARACETAMOL [Concomitant]
  4. VENTOLIN                                /SCH/ [Concomitant]

REACTIONS (6)
  - Hypersensitivity [Not Recovered/Not Resolved]
  - Decreased appetite [Unknown]
  - Rash erythematous [Not Recovered/Not Resolved]
  - Insomnia [Unknown]
  - Rash pruritic [Not Recovered/Not Resolved]
  - Oedema peripheral [Not Recovered/Not Resolved]
